FAERS Safety Report 5011689-0 (Version None)
Quarter: 2006Q2

REPORT INFORMATION
  Report Type: 
  Country: None (occurrence: None)
  Receive Date: 20060526
  Receipt Date: 20060518
  Transmission Date: 20061013
  Serious: Yes (Hospitalization)
  Sender: FDA-Public Use
  Company Number: US-JNJFOC-20060504187

PATIENT
  Sex: Female
  Weight: 63.5 kg

DRUGS (10)
  1. REMICADE [Suspect]
     Indication: RHEUMATOID ARTHRITIS
     Route: 042
  2. FOLIC ACID [Concomitant]
  3. POTASSIUM [Concomitant]
  4. ZOLOFT [Concomitant]
  5. RISPERDAL [Concomitant]
  6. METHOTREXATE [Concomitant]
  7. CALCIUM+D [Concomitant]
  8. CALCIUM+D [Concomitant]
  9. CALCIUM+D [Concomitant]
  10. ASPIRIN [Concomitant]

REACTIONS (4)
  - AORTIC VALVE INCOMPETENCE [None]
  - ATRIAL FIBRILLATION [None]
  - CARDIAC FAILURE CONGESTIVE [None]
  - MITRAL VALVE STENOSIS [None]
